FAERS Safety Report 7240868-7 (Version None)
Quarter: 2011Q1

REPORT INFORMATION
  Report Type: 
  Country: None (occurrence: None)
  Receive Date: 20110120
  Receipt Date: 20110120
  Transmission Date: 20110831
  Serious: Yes (Hospitalization)
  Sender: FDA-Public Use
  Company Number: None

PATIENT
  Age: 53 Year
  Sex: Male
  Weight: 77.1115 kg

DRUGS (1)
  1. BACLOFEN [Suspect]
     Indication: PAIN
     Dosage: 1 TABLET 4X DAY FOR 7 DAYS/MOUTH THEN 2 TABLETS 4X DAY MOUTH
     Route: 048
     Dates: start: 20101124, end: 20101225

REACTIONS (6)
  - DYSPNOEA [None]
  - HEADACHE [None]
  - INSOMNIA [None]
  - CONFUSIONAL STATE [None]
  - MYOCARDIAL INFARCTION [None]
  - MUSCLE SPASMS [None]
